FAERS Safety Report 8568378-5 (Version None)
Quarter: 2012Q3

REPORT INFORMATION
  Report Type: 
  Country: None (occurrence: None)
  Receive Date: 20120803
  Receipt Date: 20120505
  Transmission Date: 20120928
  Serious: No
  Sender: FDA-Public Use
  Company Number: US-ABBOTT-12P-163-0932715-00

PATIENT
  Sex: Male

DRUGS (1)
  1. NIASPAN [Suspect]
     Indication: PRODUCT USED FOR UNKNOWN INDICATION
     Dosage: EVERY NIGHT
     Dates: start: 20120503

REACTIONS (5)
  - POOR QUALITY SLEEP [None]
  - NERVOUSNESS [None]
  - ENERGY INCREASED [None]
  - FLUSHING [None]
  - FEELING HOT [None]
